FAERS Safety Report 4977088-2 (Version None)
Quarter: 2006Q1

REPORT INFORMATION
  Report Type: 
  Country: None (occurrence: None)
  Receive Date: 20060223
  Receipt Date: 20050516
  Transmission Date: 20060701
  Serious: Yes (Other)
  Sender: FDA-Public Use
  Company Number: HQWYE914724MAY05

PATIENT
  Sex: Female

DRUGS (2)
  1. EFFEXOR [Suspect]
     Dates: start: 20020101
  2. TAGAMET [Suspect]
     Dosage: ^JUST ABOUT EVERYDAY^

REACTIONS (4)
  - AGITATION [None]
  - ASTHENIA [None]
  - DRUG INTERACTION [None]
  - SOMNOLENCE [None]
